FAERS Safety Report 8206429-8 (Version None)
Quarter: 2012Q1

REPORT INFORMATION
  Report Type: 
  Country: None (occurrence: None)
  Receive Date: 20120313
  Receipt Date: 20120312
  Transmission Date: 20120608
  Serious: Yes (Death, Other)
  Sender: FDA-Public Use
  Company Number: PHHY2011NL72346

PATIENT
  Sex: Female

DRUGS (13)
  1. ZOMETA [Suspect]
     Indication: BREAST CANCER
     Dosage: 4MG/5ML ONCE PER 42 DAYS
     Route: 042
     Dates: start: 20100503
  2. ZOMETA [Suspect]
     Dosage: 4MG/5ML ONCE PER 42 DAYS
     Route: 042
     Dates: start: 20110630
  3. ZOMETA [Suspect]
     Dosage: 4 MG/100ML 1X PER 56 DAYS
     Route: 042
     Dates: start: 20120126, end: 20120126
  4. ESOMEPRAZOLE SODIUM [Concomitant]
     Dosage: UNK
  5. ACETAMINOPHEN [Concomitant]
     Dosage: UNK
  6. CALCIUM CARBONATE [Concomitant]
     Dosage: UNK
  7. DICLOFENAC SODIUM [Concomitant]
     Dosage: UNK
  8. LYRICA [Concomitant]
     Dosage: UNK
  9. MOVICOLON [Concomitant]
     Dosage: UNK
  10. ZOMETA [Suspect]
     Dosage: 4 MG/100ML 1X PER 56 DAYS
     Route: 042
     Dates: start: 20111130
  11. DEXAMETHASONE SODIUM PHOSPHATE [Concomitant]
  12. TAMOXIFEN CITRATE [Concomitant]
     Dosage: UNK
  13. ZOMETA [Suspect]
     Dosage: 4MG/5ML ONCE PER 42 DAYS
     Route: 042
     Dates: start: 20110811

REACTIONS (6)
  - MALAISE [None]
  - COGNITIVE DISORDER [None]
  - HAEMATOMA [None]
  - CONFUSIONAL STATE [None]
  - GAIT DISTURBANCE [None]
  - DEATH [None]
